FAERS Safety Report 4877214-X (Version None)
Quarter: 2005Q4

REPORT INFORMATION
  Report Type: 
  Country: None (occurrence: None)
  Receive Date: 20051206
  Receipt Date: 20050927
  Transmission Date: 20060501
  Serious: No
  Sender: FDA-Public Use
  Company Number: USA0509109368

PATIENT
  Sex: Female

DRUGS (3)
  1. CYMBALTA [Suspect]
     Indication: DIABETIC NEUROPATHY
     Dosage: 30 MG
  2. RISPERDAL [Concomitant]
  3. ATIVAN [Concomitant]

REACTIONS (3)
  - BLADDER CATHETERISATION [None]
  - HEART RATE INCREASED [None]
  - URINARY RETENTION [None]
